FAERS Safety Report 7767428-3 (Version None)
Quarter: 2011Q3

REPORT INFORMATION
  Report Type: 
  Country: None (occurrence: None)
  Receive Date: 20110922
  Receipt Date: 20110603
  Transmission Date: 20111222
  Serious: Yes (Hospitalization)
  Sender: FDA-Public Use
  Company Number: US-ASTRAZENECA-2010SE27281

PATIENT
  Age: 52 Year
  Sex: Female

DRUGS (15)
  1. ADVAIR DISKUS 100/50 [Concomitant]
     Dosage: BID
  2. ALBUTEROL [Concomitant]
  3. IFOSFAMIDE [Concomitant]
  4. ASPIRIN [Concomitant]
  5. SPIRIVA [Concomitant]
     Dosage: DAILY
  6. SEROQUEL [Suspect]
     Indication: BIPOLAR DISORDER
     Route: 048
     Dates: start: 20100501
  7. PREDNISONE [Concomitant]
  8. METFORMIN HCL [Concomitant]
  9. PRAVASTATIN [Concomitant]
     Dosage: 40 MGS
  10. CHLORCON [Concomitant]
  11. IMDUR [Concomitant]
  12. XANAX [Concomitant]
  13. LISINOPRIL AND HYDROCHLOROTHIAZIDE [Concomitant]
     Dosage: 20/12.5 DAILY
  14. FLUOXETINE [Concomitant]
     Dosage: 20 MGS
  15. OXYGEN [Concomitant]

REACTIONS (2)
  - BLOOD GLUCOSE INCREASED [None]
  - PNEUMONIA [None]
